FAERS Safety Report 4927248-1 (Version None)
Quarter: 2006Q1

REPORT INFORMATION
  Report Type: 
  Country: None (occurrence: None)
  Receive Date: 20060228
  Receipt Date: 20050310
  Transmission Date: 20060701
  Serious: No
  Sender: FDA-Public Use
  Company Number: US-GLAXOSMITHKLINE-A0549234A

PATIENT
  Sex: Female

DRUGS (2)
  1. IMITREX [Suspect]
     Indication: MIGRAINE
     Dosage: 6MG AS REQUIRED
     Route: 058
     Dates: start: 19920101
  2. NO CONCURRENT MEDICATION [Concomitant]

REACTIONS (5)
  - BLOOD PRESSURE INCREASED [None]
  - DRY MOUTH [None]
  - POOR QUALITY DRUG ADMINISTERED [None]
  - SWELLING [None]
  - THERMAL BURN [None]
